FAERS Safety Report 14152960 (Version 1)
Quarter: 2017Q4

REPORT INFORMATION
  Report Type: Spontaneous
  Country: DZ (occurrence: DZ)
  Receive Date: 20171102
  Receipt Date: 20171102
  Transmission Date: 20180321
  Serious: Yes (Hospitalization, Other)
  Sender: FDA-Public Use
  Company Number: DZ-BIOGEN-2017BI00464761

PATIENT
  Age: 32 Year
  Sex: Male

DRUGS (2)
  1. TYSABRI [Suspect]
     Active Substance: NATALIZUMAB
     Route: 042
     Dates: start: 20161106, end: 20170806
  2. TYSABRI [Suspect]
     Active Substance: NATALIZUMAB
     Indication: MULTIPLE SCLEROSIS
     Route: 042
     Dates: start: 20150621, end: 20160802

REACTIONS (2)
  - Multiple sclerosis relapse [Unknown]
  - Seizure [Unknown]

NARRATIVE: CASE EVENT DATE: 20170814
